FAERS Safety Report 7529340-4 (Version None)
Quarter: 2011Q2

REPORT INFORMATION
  Report Type: 
  Country: None (occurrence: None)
  Receive Date: 20110531
  Receipt Date: 20110518
  Transmission Date: 20111010
  Serious: Yes (Death, Other)
  Sender: FDA-Public Use
  Company Number: ADE#09-371DF

PATIENT
  Sex: Male

DRUGS (1)
  1. DIGOXIN [Suspect]

REACTIONS (7)
  - CONFUSIONAL STATE [None]
  - ARRHYTHMIA [None]
  - HALLUCINATION [None]
  - DISORIENTATION [None]
  - TOXICITY TO VARIOUS AGENTS [None]
  - DELIRIUM [None]
  - DECREASED APPETITE [None]
